FAERS Safety Report 8211660-1 (Version None)
Quarter: 2012Q1

REPORT INFORMATION
  Report Type: 
  Country: None (occurrence: None)
  Receive Date: 20120315
  Receipt Date: 20120302
  Transmission Date: 20120608
  Serious: Yes (Life-Threatening, Hospitalization, Other)
  Sender: FDA-Public Use
  Company Number: GB-CELGENEUS-167-20785-12022125

PATIENT
  Age: 71 Year
  Sex: Male

DRUGS (5)
  1. DALTEPARIN SODIUM [Concomitant]
     Route: 065
  2. CYCLOPHOSPHAMIDE [Suspect]
     Indication: MULTIPLE MYELOMA
     Route: 048
     Dates: start: 20111006, end: 20120210
  3. WARFARIN SODIUM [Concomitant]
     Route: 065
  4. THALIDOMIDE [Suspect]
     Indication: MULTIPLE MYELOMA
     Route: 048
     Dates: start: 20111006, end: 20120214
  5. DEXAMETHASONE [Suspect]
     Indication: MULTIPLE MYELOMA
     Route: 048
     Dates: start: 20111006, end: 20120207

REACTIONS (1)
  - MYOCARDIAL INFARCTION [None]
